FAERS Safety Report 9749474 (Version 1)
Quarter: 2013Q4

REPORT INFORMATION
  Report Type: Report from Study
  Country: NL (occurrence: NL)
  Receive Date: 20131212
  Receipt Date: 20131212
  Transmission Date: 20140711
  Serious: Yes (Hospitalization)
  Sender: FDA-Public Use
  Company Number: PHHY2013NL145189

PATIENT
  Age: 68 Year
  Sex: Male

DRUGS (3)
  1. ZOMETA [Suspect]
     Indication: PROSTATE CANCER
     Dosage: 4 MG/100MG, ONCE PER 4 WEEKS
     Route: 042
  2. ZOMETA [Suspect]
     Dosage: 4 MG/100MG, ONCE PER 4 WEEKS
     Route: 042
     Dates: start: 20130730
  3. ZOMETA [Suspect]
     Dosage: 4 MG/100MG, ONCE PER 4 WEEKS
     Route: 042
     Dates: start: 20131118

REACTIONS (2)
  - Gastric haemorrhage [Recovered/Resolved]
  - Pulmonary embolism [Recovering/Resolving]
